FAERS Safety Report 7424856-3 (Version None)
Quarter: 2011Q2

REPORT INFORMATION
  Report Type: 
  Country: None (occurrence: None)
  Receive Date: 20110419
  Receipt Date: 20090525
  Transmission Date: 20111010
  Serious: Yes (Hospitalization, Other)
  Sender: FDA-Public Use
  Company Number: DE-GENENTECH-316937

PATIENT
  Age: 86 Year
  Sex: Female

DRUGS (1)
  1. LUCENTIS [Suspect]
     Indication: MACULAR DEGENERATION
     Dosage: UNK
     Route: 031
     Dates: start: 20080107

REACTIONS (5)
  - ABDOMINAL DISCOMFORT [None]
  - DACRYOSTENOSIS ACQUIRED [None]
  - VISUAL ACUITY REDUCED [None]
  - BENIGN BREAST NEOPLASM [None]
  - CARDIAC DISORDER [None]
